FAERS Safety Report 4698324-6 (Version None)
Quarter: 2005Q2

REPORT INFORMATION
  Report Type: 
  Country: None (occurrence: None)
  Receive Date: 20050623
  Receipt Date: 20050405
  Transmission Date: 20051028
  Serious: Yes (Other)
  Sender: FDA-Public Use
  Company Number: US-ROCHE-401146

PATIENT
  Age: 49 Year
  Sex: Male

DRUGS (5)
  1. FUZEON [Suspect]
     Indication: HIV INFECTION
     Dosage: ROUTE REPORTED AS INJECTABLE
     Route: 050
     Dates: start: 20040409
  2. EMTRIVA [Concomitant]
     Indication: HIV INFECTION
     Dates: start: 20040409
  3. VIREAD [Concomitant]
     Indication: HIV INFECTION
     Dates: start: 20040409
  4. KALETRA [Concomitant]
     Indication: HIV INFECTION
     Dates: start: 20040409
  5. COUMADIN [Concomitant]

REACTIONS (11)
  - ANGER [None]
  - BLOOD DISORDER [None]
  - CONTUSION [None]
  - FACTOR II DEFICIENCY [None]
  - GASTRIC DISORDER [None]
  - INJECTION SITE REACTION [None]
  - INTERNATIONAL NORMALISED RATIO ABNORMAL [None]
  - PAIN [None]
  - PROTHROMBIN LEVEL ABNORMAL [None]
  - SWELLING [None]
  - URTICARIA [None]
